FAERS Safety Report 9258818 (Version 3)
Quarter: 2013Q3

REPORT INFORMATION
  Report Type: Report from Study
  Country: JP (occurrence: JP)
  Receive Date: 20130426
  Receipt Date: 20130828
  Transmission Date: 20140515
  Serious: Yes (Hospitalization, Other)
  Sender: FDA-Public Use
  Company Number: JP-ABBOTT-12P-087-1020355-00

PATIENT
  Age: 63 Year
  Sex: Male
  Weight: 73.6 kg

DRUGS (14)
  1. HUMIRA [Suspect]
     Indication: RHEUMATOID ARTHRITIS
     Route: 058
     Dates: start: 20100120, end: 20100819
  2. HUMIRA [Suspect]
     Route: 058
     Dates: start: 20100909, end: 20110727
  3. HUMIRA [Suspect]
     Route: 058
     Dates: start: 20110824, end: 20120322
  4. METOLATE [Suspect]
     Indication: RHEUMATOID ARTHRITIS
     Dates: start: 20100610, end: 20120115
  5. PREDNISOLONE [Concomitant]
     Indication: RHEUMATOID ARTHRITIS
     Route: 048
     Dates: start: 20120423
  6. PREDNISOLONE [Concomitant]
     Indication: INTERSTITIAL LUNG DISEASE
  7. ETODOLAC [Concomitant]
     Indication: RHEUMATOID ARTHRITIS
     Route: 048
     Dates: start: 20070109, end: 20120323
  8. ETODOLAC [Concomitant]
     Route: 048
     Dates: start: 20080101, end: 20120423
  9. TEPRENONE [Concomitant]
     Indication: PROPHYLAXIS
     Route: 048
     Dates: start: 20070109, end: 20120323
  10. TEPRENONE [Concomitant]
     Indication: ADVERSE EVENT
     Route: 048
     Dates: start: 20080101, end: 20120423
  11. FOLIC ACID [Concomitant]
     Indication: PROPHYLAXIS
     Dosage: 5 MG/WEEK
     Route: 048
     Dates: start: 20080101, end: 20120105
  12. FOLIC ACID [Concomitant]
     Indication: ADVERSE EVENT
  13. FLURBIPROFEN [Concomitant]
     Indication: RHEUMATOID ARTHRITIS
     Dosage: Q.S. TRANSDERMAL PATCH
     Route: 062
     Dates: start: 20080101
  14. FLURBIPROFEN [Concomitant]
     Dosage: TRANSDERMAL PATCH
     Route: 062
     Dates: start: 20080520

REACTIONS (5)
  - Immunosuppression [Unknown]
  - Pyrexia [Unknown]
  - Cough [Unknown]
  - Atypical pneumonia [Unknown]
  - Interstitial lung disease [Recovered/Resolved]
